FAERS Safety Report 13742393 (Version 5)
Quarter: 2017Q3

REPORT INFORMATION
  Report Type: Spontaneous
  Country: JP (occurrence: JP)
  Receive Date: 20170711
  Receipt Date: 20170926
  Transmission Date: 20171127
  Serious: Yes (Death, Life-Threatening, Other)
  Sender: FDA-Public Use
  Company Number: JP-UCBSA-2017026057

PATIENT
  Age: 89 Year
  Sex: Male
  Weight: 53 kg

DRUGS (10)
  1. FUROSEMIDE. [Concomitant]
     Active Substance: FUROSEMIDE
     Indication: RENAL IMPAIRMENT
     Dosage: 20 MG A DAY
     Dates: start: 20170629
  2. VIMPAT [Suspect]
     Active Substance: LACOSAMIDE
     Indication: EPILEPSY
     Dosage: 50 MG, 2X/DAY (BID)
     Route: 048
     Dates: start: 20170628, end: 20170702
  3. NOREPINEPHRINE. [Concomitant]
     Active Substance: NOREPINEPHRINE
     Indication: HYPOXIC-ISCHAEMIC ENCEPHALOPATHY
     Dosage: UNK
     Route: 041
     Dates: start: 20170619, end: 20170623
  4. PROPOFOL. [Concomitant]
     Active Substance: PROPOFOL
     Indication: EPILEPSY
     Dosage: UNK
     Route: 041
     Dates: start: 20170618, end: 20170621
  5. MIDAZOLAM [Concomitant]
     Active Substance: MIDAZOLAM HYDROCHLORIDE
     Indication: EPILEPSY
     Dosage: UNK
     Route: 041
     Dates: start: 20170618, end: 20170623
  6. E KEPPRA [Suspect]
     Active Substance: LEVETIRACETAM
     Indication: EPILEPSY
     Dosage: 500 MG, 2X/DAY (BID)
     Route: 041
     Dates: start: 20170619, end: 20170625
  7. LANSOPRAZOLE. [Concomitant]
     Active Substance: LANSOPRAZOLE
     Indication: PRODUCT USED FOR UNKNOWN INDICATION
     Dosage: 15 MG, ONCE DAILY (QD)
     Route: 048
     Dates: start: 20170514, end: 20170715
  8. CARPERITIDE [Concomitant]
     Active Substance: CARPERITIDE
     Indication: RENAL IMPAIRMENT
     Dosage: 1000 ?G DAILY
     Dates: start: 20170629
  9. E KEPPRA [Suspect]
     Active Substance: LEVETIRACETAM
     Indication: EPILEPSY
     Dosage: 500 MG, 2X/DAY (BID)
     Route: 048
     Dates: start: 20170626, end: 20170714
  10. MAGNESIUM OXIDE. [Concomitant]
     Active Substance: MAGNESIUM OXIDE
     Indication: CONSTIPATION
     Dosage: 330 MG, 3X/DAY (TID)
     Dates: start: 20170628, end: 20170715

REACTIONS (1)
  - Acute kidney injury [Fatal]

NARRATIVE: CASE EVENT DATE: 20170630
